FAERS Safety Report 7638037-1 (Version None)
Quarter: 2011Q3

REPORT INFORMATION
  Report Type: 
  Country: None (occurrence: None)
  Receive Date: 20110727
  Receipt Date: 20110722
  Transmission Date: 20111222
  Serious: Yes (Other)
  Sender: FDA-Public Use
  Company Number: US-BAYER-2011-051045

PATIENT
  Age: 16 Year
  Sex: Female
  Weight: 107 kg

DRUGS (2)
  1. YAZ [Suspect]
     Indication: PRODUCT USED FOR UNKNOWN INDICATION
     Dosage: UNK
     Route: 048
     Dates: start: 20080101, end: 20091028
  2. NSAID'S [Concomitant]
     Dosage: UNK UNK, PRN

REACTIONS (8)
  - DEEP VEIN THROMBOSIS [None]
  - PAIN [None]
  - PSYCHIATRIC SYMPTOM [None]
  - INJURY [None]
  - ANHEDONIA [None]
  - GAIT DISTURBANCE [None]
  - ANXIETY [None]
  - FEAR [None]
